FAERS Safety Report 8195650-3 (Version None)
Quarter: 2012Q1

REPORT INFORMATION
  Report Type: 
  Country: None (occurrence: None)
  Receive Date: 20120308
  Receipt Date: 20120301
  Transmission Date: 20120608
  Serious: Yes (Disabling)
  Sender: FDA-Public Use
  Company Number: GB-GILEAD-2012-0051747

PATIENT
  Age: 72 Year
  Sex: Female

DRUGS (8)
  1. AMBRISENTAN [Suspect]
     Indication: PULMONARY ARTERIAL HYPERTENSION
     Dosage: 10 MG, QD
     Route: 048
     Dates: start: 20120117
  2. FUROSEMIDE [Concomitant]
  3. DIGOXIN [Concomitant]
  4. ROSUVASTATIN [Concomitant]
  5. CALCIUM CARBONATE [Concomitant]
  6. BECLOMETHASONE DIPROPIONATE [Concomitant]
  7. AMBRISENTAN [Suspect]
     Dosage: 5 UNK, UNK
     Route: 048
     Dates: start: 20110117, end: 20120117
  8. WARFARIN SODIUM [Concomitant]

REACTIONS (4)
  - BALANCE DISORDER [None]
  - CEREBELLAR ATAXIA [None]
  - GAIT DISTURBANCE [None]
  - CEREBELLAR SYNDROME [None]
